FAERS Safety Report 10516222 (Version 1)
Quarter: 2014Q4

REPORT INFORMATION
  Report Type: Spontaneous
  Country: US (occurrence: None)
  Receive Date: 20141003
  Receipt Date: 20141003
  Transmission Date: 20150528
  Serious: Yes (Disabling)
  Sender: FDA-Public Use
  Company Number: 1894517

PATIENT

DRUGS (1)
  1. VANCOMYCIN HYDROCHLORIDE FOR INJECTION USP (VANCOMYCIN HYDROCHLORIDE) [Suspect]
     Active Substance: VANCOMYCIN HYDROCHLORIDE
     Indication: PRODUCT USED FOR UNKNOWN INDICATION
     Dosage: NOT REPORTED , NOT REPORTED , UNKNOWN , UNKNOWN

REACTIONS (1)
  - Deafness [None]
